FAERS Safety Report 7801752-0 (Version None)
Quarter: 2011Q4

REPORT INFORMATION
  Report Type: 
  Country: None (occurrence: None)
  Receive Date: 20111007
  Receipt Date: 20111006
  Transmission Date: 20120403
  Serious: Yes (Death)
  Sender: FDA-Public Use
  Company Number: JP-SANOFI-AVENTIS-2011SA065458

PATIENT
  Age: 70 Year
  Sex: Male

DRUGS (1)
  1. OXALIPLATIN [Suspect]
     Route: 065

REACTIONS (1)
  - TUMOUR LYSIS SYNDROME [None]
